FAERS Safety Report 8902853 (Version 1)
Quarter: 2012Q4

REPORT INFORMATION
  Report Type: 
  Country: US (occurrence: US)
  Receive Date: 20121112
  Receipt Date: 20121112
  Transmission Date: 20130627
  Serious: Yes (Hospitalization)
  Sender: FDA-Public Use
  Company Number: US-ASTRAZENECA-2012SE83700

PATIENT
  Age: 66 Year
  Sex: Male
  Weight: 86.2 kg

DRUGS (16)
  1. OMEPRAZOLE [Suspect]
     Indication: GASTRIC ULCER
     Route: 048
     Dates: start: 201209
  2. SEROQUEL XR [Suspect]
     Indication: SCHIZOPHRENIA
     Route: 048
     Dates: start: 201201, end: 201207
  3. SEROQUEL XR [Suspect]
     Indication: SLEEP DISORDER
     Route: 048
     Dates: start: 201201, end: 201207
  4. SEROQUEL XR [Suspect]
     Indication: SCHIZOPHRENIA
     Dosage: GENERIC, 300 MG DAILY
     Route: 048
     Dates: start: 201207, end: 201209
  5. SEROQUEL XR [Suspect]
     Indication: SLEEP DISORDER
     Dosage: GENERIC, 300 MG DAILY
     Route: 048
     Dates: start: 201207, end: 201209
  6. SEROQUEL XR [Suspect]
     Indication: SCHIZOPHRENIA
     Dosage: GENERIC, 150 MG DAILY
     Route: 048
     Dates: start: 201209
  7. SEROQUEL XR [Suspect]
     Indication: SLEEP DISORDER
     Dosage: GENERIC, 150 MG DAILY
     Route: 048
     Dates: start: 201209
  8. PROMETHAZINE [Concomitant]
     Indication: NAUSEA
     Dates: start: 201205
  9. TRAZADONE [Concomitant]
     Indication: SLEEP DISORDER
     Dates: start: 2005
  10. ENALAPREATE MALEATE [Concomitant]
     Indication: DIABETES MELLITUS
     Dates: start: 201205
  11. ZOCOR [Concomitant]
     Dates: start: 201205
  12. CELEXA [Concomitant]
     Indication: DEPRESSION
     Dates: start: 2010
  13. ALPRAZOLAM [Concomitant]
     Indication: ANXIETY
     Dates: start: 201208
  14. ATENOLOL/CHLORTHAL [Concomitant]
     Dosage: 50/25
  15. FENTANYL PATCH [Concomitant]
     Route: 061
     Dates: start: 2010
  16. FENTANYL PATCH [Concomitant]
     Route: 061
     Dates: start: 2012

REACTIONS (9)
  - Panic attack [Not Recovered/Not Resolved]
  - Anxiety [Not Recovered/Not Resolved]
  - Malaise [Unknown]
  - Nausea [Recovered/Resolved]
  - Intestinal polyp [Not Recovered/Not Resolved]
  - Middle insomnia [Unknown]
  - Gastric ulcer [Not Recovered/Not Resolved]
  - Drug ineffective [Unknown]
  - Off label use [Unknown]
